FAERS Safety Report 6686099-0 (Version None)
Quarter: 2010Q2

REPORT INFORMATION
  Report Type: 
  Country: None (occurrence: None)
  Receive Date: 20100419
  Receipt Date: 20100223
  Transmission Date: 20101027
  Serious: Yes (Death, Hospitalization, Other)
  Sender: FDA-Public Use
  Company Number: JP-BAYER-200812061BYL

PATIENT
  Age: 71 Year
  Sex: Male
  Weight: 43 kg

DRUGS (12)
  1. NEXAVAR [Suspect]
     Indication: RENAL CELL CARCINOMA
     Dosage: TOTAL DAILY DOSE: 800 MG  UNIT DOSE: 200 MG
     Route: 048
     Dates: start: 20080725, end: 20080819
  2. NEXAVAR [Suspect]
     Dosage: TOTAL DAILY DOSE: 800 MG  UNIT DOSE: 200 MG
     Route: 048
     Dates: start: 20080825, end: 20081020
  3. GASTER D [Concomitant]
     Route: 048
     Dates: start: 20080717
  4. LOXONIN [Concomitant]
     Route: 048
     Dates: start: 20080707, end: 20080718
  5. MUCOSTA [Concomitant]
     Route: 048
     Dates: start: 20080707, end: 20080718
  6. ALOSENN [Concomitant]
     Route: 048
     Dates: start: 20080707
  7. MAGLAX [Concomitant]
     Route: 048
     Dates: start: 20080707
  8. OXYCONTIN [Concomitant]
     Indication: CANCER PAIN
     Route: 048
     Dates: start: 20080716, end: 20080812
  9. OXYCONTIN [Concomitant]
     Route: 048
     Dates: start: 20080707, end: 20080715
  10. DUROTEP [Concomitant]
     Indication: CANCER PAIN
     Dosage: 4.2 MG/3 DAYS
     Route: 062
     Dates: start: 20080813
  11. PROCHLORPERAZINE [Concomitant]
     Indication: VOMITING
     Dosage: UNIT DOSE: 5 MG
     Route: 048
     Dates: start: 20080716
  12. LASIX [Concomitant]
     Indication: PLEURAL EFFUSION
     Route: 048
     Dates: start: 20080720

REACTIONS (6)
  - HYPERTENSION [None]
  - PARALYSIS [None]
  - PYREXIA [None]
  - RASH [None]
  - RENAL CELL CARCINOMA [None]
  - SEPSIS [None]
